FAERS Safety Report 4928814-X (Version None)
Quarter: 2006Q1

REPORT INFORMATION
  Report Type: 
  Country: None (occurrence: None)
  Receive Date: 20060301
  Receipt Date: 20060222
  Transmission Date: 20060701
  Serious: Yes (Other)
  Sender: FDA-Public Use
  Company Number: CA-AVENTIS-200611700GDDC

PATIENT
  Age: 16 Year
  Sex: Male

DRUGS (1)
  1. BENZAMYCIN [Suspect]
     Indication: ACNE
     Route: 061
     Dates: start: 20060222

REACTIONS (1)
  - SYNCOPE [None]
